FAERS Safety Report 20687860 (Version 1)
Quarter: 2022Q2

REPORT INFORMATION
  Report Type: Spontaneous
  Country: CN (occurrence: CN)
  Receive Date: 20220408
  Receipt Date: 20220408
  Transmission Date: 20220720
  Serious: Yes (Other)
  Sender: FDA-Public Use
  Company Number: CN-PFIZER INC-202200499658

PATIENT
  Age: 8 Month
  Sex: Male
  Weight: 8.4 kg

DRUGS (1)
  1. ENBREL [Suspect]
     Active Substance: ETANERCEPT
     Indication: Kawasaki^s disease
     Dosage: 0.8 MG/KG
     Route: 058

REACTIONS (3)
  - Macule [Recovered/Resolved]
  - Pruritus [Recovered/Resolved]
  - Off label use [Unknown]
